FAERS Safety Report 22113449 (Version 2)
Quarter: 2025Q1

REPORT INFORMATION
  Report Type: Report from Study
  Country: GB (occurrence: GB)
  Receive Date: 20230320
  Receipt Date: 20250122
  Transmission Date: 20250408
  Serious: Yes (Other)
  Sender: ROCHE
  Company Number: GB-ROCHE-1658566

PATIENT
  Age: 52 Year
  Sex: Female

DRUGS (6)
  1. TOCILIZUMAB [Suspect]
     Active Substance: TOCILIZUMAB
     Indication: Rheumatoid arthritis
     Dosage: 648 MG TOTAL MONTHLY DOSE
     Route: 058
     Dates: start: 20150707
  2. TOCILIZUMAB [Suspect]
     Active Substance: TOCILIZUMAB
     Route: 058
  3. TOCILIZUMAB [Suspect]
     Active Substance: TOCILIZUMAB
     Route: 058
  4. TOCILIZUMAB [Suspect]
     Active Substance: TOCILIZUMAB
     Route: 058
  5. TOCILIZUMAB [Suspect]
     Active Substance: TOCILIZUMAB
     Route: 058
  6. TOCILIZUMAB [Suspect]
     Active Substance: TOCILIZUMAB
     Route: 058

REACTIONS (10)
  - Pharyngitis [Unknown]
  - Bronchitis [Unknown]
  - Lower respiratory tract infection [Recovered/Resolved]
  - Diarrhoea infectious [Unknown]
  - Illness [Unknown]
  - Arthralgia [Unknown]
  - Abdominal abscess [Unknown]
  - COVID-19 [Unknown]
  - Arthropod bite [Unknown]
  - Infection [Unknown]
